FAERS Safety Report 6775666-1 (Version None)
Quarter: 2010Q2

REPORT INFORMATION
  Report Type: 
  Country: None (occurrence: None)
  Receive Date: 20100617
  Receipt Date: 20100605
  Transmission Date: 20101027
  Serious: Yes (Hospitalization)
  Sender: FDA-Public Use
  Company Number: US-WYE-H15530610

PATIENT
  Sex: Male
  Weight: 65.83 kg

DRUGS (2)
  1. PRISTIQ [Suspect]
     Indication: DEPRESSION
     Route: 048
     Dates: start: 20100510, end: 20100523
  2. LORAZEPAM [Concomitant]
     Indication: ANXIETY
     Dosage: UNKNOWN DOSE AS NEEDED

REACTIONS (5)
  - AGITATION [None]
  - ANXIETY [None]
  - CONDITION AGGRAVATED [None]
  - DRUG INEFFECTIVE [None]
  - PANCREATITIS [None]
